FAERS Safety Report 17548867 (Version 5)
Quarter: 2021Q3

REPORT INFORMATION
  Report Type: Other
  Country: KR (occurrence: KR)
  Receive Date: 20200317
  Receipt Date: 20210922
  Transmission Date: 20211014
  Serious: Yes (Hospitalization)
  Sender: FDA-Public Use
  Company Number: KR-ROCHE-2561995

PATIENT
  Age: 2 Year
  Sex: Male
  Weight: 9.7 kg

DRUGS (6)
  1. EMICIZUMAB. [Suspect]
     Active Substance: EMICIZUMAB
     Dosage: 3MG/KG (29.1MG)
     Route: 058
     Dates: start: 20191231
  2. BIOFLOR [Concomitant]
     Dosage: 250
     Dates: start: 20191015, end: 20191114
  3. DUPHALAC EASY [Concomitant]
     Active Substance: LACTULOSE
     Dates: start: 20191015, end: 20191114
  4. SINGULAIR [Concomitant]
     Active Substance: MONTELUKAST SODIUM
     Dates: start: 20191015, end: 20191211
  5. EMICIZUMAB. [Suspect]
     Active Substance: EMICIZUMAB
     Indication: FACTOR VIII DEFICIENCY
     Dosage: 3MG/KG (29.1MG)
     Route: 058
     Dates: start: 20190924, end: 20191015
  6. EMICIZUMAB. [Suspect]
     Active Substance: EMICIZUMAB
     Dosage: 1.5MG/KG (14.55MG)
     Route: 058
     Dates: start: 20191022, end: 20191226

REACTIONS (5)
  - Tonsillitis [Recovered/Resolved]
  - Oedema peripheral [Recovered/Resolved]
  - Vascular device infection [Recovered/Resolved]
  - Bronchitis [Recovered/Resolved]
  - Off label use [Unknown]

NARRATIVE: CASE EVENT DATE: 20191008
